FAERS Safety Report 4598984-4 (Version None)
Quarter: 2005Q1

REPORT INFORMATION
  Report Type: 
  Country: None (occurrence: None)
  Receive Date: 20050302
  Receipt Date: 20040206
  Transmission Date: 20050727
  Serious: Yes (Hospitalization)
  Sender: FDA-Public Use
  Company Number: 7420

PATIENT
  Age: 9 Year
  Sex: Female

DRUGS (6)
  1. METHOTREXATE [Suspect]
     Indication: BONE SARCOMA
     Dosage: 11.1 G ONCE; IV
     Route: 042
     Dates: start: 20040105, end: 20040105
  2. SODIUM BICARBONATE [Concomitant]
  3. GRANISETRON [Concomitant]
  4. CHLORPROMAZINE HYDROCHLORIDE [Concomitant]
  5. LEUCOVORIN [Concomitant]
  6. GLYCYRRHIZINATE POTASSIUM [Concomitant]

REACTIONS (14)
  - ALANINE AMINOTRANSFERASE INCREASED [None]
  - ASPARTATE AMINOTRANSFERASE INCREASED [None]
  - BLOOD ALBUMIN DECREASED [None]
  - BLOOD ALKALINE PHOSPHATASE INCREASED [None]
  - BLOOD BILIRUBIN INCREASED [None]
  - BLOOD LACTATE DEHYDROGENASE INCREASED [None]
  - BONE MARROW DEPRESSION [None]
  - CHEMOTHERAPEUTIC DRUG LEVEL INCREASED [None]
  - DRUG CLEARANCE DECREASED [None]
  - GAMMA-GLUTAMYLTRANSFERASE INCREASED [None]
  - HAEMODIALYSIS [None]
  - HEPATIC FUNCTION ABNORMAL [None]
  - PROTEIN TOTAL DECREASED [None]
  - RENAL FAILURE ACUTE [None]
